FAERS Safety Report 6914852-4 (Version None)
Quarter: 2010Q3

REPORT INFORMATION
  Report Type: 
  Country: None (occurrence: None)
  Receive Date: 20100804
  Receipt Date: 20100804
  Transmission Date: 20110219
  Serious: No
  Sender: FDA-Public Use
  Company Number: None

PATIENT
  Age: 67 Year
  Sex: Male

DRUGS (1)
  1. PIPERACILLIN AND TAZOBACTAM [Suspect]
     Dates: start: 20100430

REACTIONS (4)
  - DRUG HYPERSENSITIVITY [None]
  - MOUTH ULCERATION [None]
  - OROPHARYNGEAL PLAQUE [None]
  - STOMATITIS [None]
